FAERS Safety Report 7751334-4 (Version None)
Quarter: 2011Q3

REPORT INFORMATION
  Report Type: 
  Country: None (occurrence: None)
  Receive Date: 20110914
  Receipt Date: 20090709
  Transmission Date: 20111222
  Serious: Yes (Other)
  Sender: FDA-Public Use
  Company Number: PHHY2010TW15575

PATIENT
  Sex: Female

DRUGS (1)
  1. GLEEVEC [Suspect]
     Indication: GASTROINTESTINAL STROMAL TUMOUR
     Dosage: 400 UNK, UNK
     Route: 048

REACTIONS (6)
  - BACK PAIN [None]
  - PAIN [None]
  - DEPRESSION [None]
  - CARDIAC DISORDER [None]
  - ABASIA [None]
  - DYSSTASIA [None]
